FAERS Safety Report 21149586 (Version 1)
Quarter: 2022Q3

REPORT INFORMATION
  Report Type: Spontaneous
  Country: US (occurrence: US)
  Receive Date: 20220729
  Receipt Date: 20220729
  Transmission Date: 20221027
  Serious: Yes (Other)
  Sender: FDA-Public Use
  Company Number: US-GLAXOSMITHKLINE-USCH2022AMR026346

PATIENT

DRUGS (3)
  1. IBUPROFEN [Suspect]
     Active Substance: IBUPROFEN
     Indication: Product used for unknown indication
     Dosage: UNK
  2. VIAGRA [Suspect]
     Active Substance: SILDENAFIL CITRATE
     Indication: Male orgasmic disorder
     Dosage: 100 MG
  3. VIAGRA [Suspect]
     Active Substance: SILDENAFIL CITRATE
     Indication: Semen analysis abnormal

REACTIONS (2)
  - Erectile dysfunction [Unknown]
  - Dysuria [Unknown]
